FAERS Safety Report 9036876 (Version 1)
Quarter: 2013Q1

REPORT INFORMATION
  Report Type: Spontaneous
  Country: US (occurrence: None)
  Receive Date: 20130118
  Receipt Date: 20130118
  Transmission Date: 20140127
  Serious: Yes (Life-Threatening, Hospitalization, Other)
  Sender: FDA-Public Use
  Company Number: None

PATIENT
  Age: 58 Year
  Sex: Female
  Weight: 70.76 kg

DRUGS (1)
  1. VII-BYRD [Suspect]
     Indication: CRYING
     Dosage: 1 TABLET 1 X DAY PO
     Route: 048
     Dates: start: 20120928, end: 20121029

REACTIONS (19)
  - Toxicity to various agents [None]
  - Chest pain [None]
  - Dyspepsia [None]
  - Gastrooesophageal reflux disease [None]
  - Paraesthesia [None]
  - Hypophagia [None]
  - Expressive language disorder [None]
  - Feeling abnormal [None]
  - Cognitive disorder [None]
  - Impaired driving ability [None]
  - Dyspnoea [None]
  - Apnoea [None]
  - Tremor [None]
  - Crying [None]
  - Hypotension [None]
  - Body temperature increased [None]
  - Cough [None]
  - Pain in extremity [None]
  - Hallucination [None]
